FAERS Safety Report 5614553-9 (Version None)
Quarter: 2008Q1

REPORT INFORMATION
  Report Type: 
  Country: None (occurrence: None)
  Receive Date: 20080205
  Receipt Date: 20080110
  Transmission Date: 20080703
  Serious: No
  Sender: FDA-Public Use
  Company Number: US-BOEHRINGER INGELHEIM GMBH, GERMANY-2007-BP-25971BP

PATIENT
  Sex: Female

DRUGS (6)
  1. SPIRIVA [Suspect]
     Route: 055
     Dates: start: 20071201, end: 20071217
  2. ADVAIR DISKUS 100/50 [Concomitant]
     Dates: start: 20071201
  3. RANITIDINE [Concomitant]
     Dates: start: 20070830
  4. DIOVAN [Concomitant]
     Dates: start: 20051010
  5. MAXZIDE [Concomitant]
     Dates: start: 20051010
  6. PRIMIDONE [Concomitant]
     Dates: start: 20070717

REACTIONS (1)
  - TONGUE DISCOLOURATION [None]
